FAERS Safety Report 8539166-0 (Version None)
Quarter: 2012Q3

REPORT INFORMATION
  Report Type: 
  Country: None (occurrence: None)
  Receive Date: 20120726
  Receipt Date: 20120717
  Transmission Date: 20120928
  Serious: Yes (Other)
  Sender: FDA-Public Use
  Company Number: GB-NOVOPROD-331550

PATIENT
  Age: 62 Year
  Sex: Male
  Weight: 110.7 kg

DRUGS (3)
  1. VICTOZA [Suspect]
     Indication: TYPE 2 DIABETES MELLITUS
     Dosage: 1.2 MG, QD
     Dates: start: 20101026, end: 20110519
  2. VICTOZA [Suspect]
     Dosage: UNK
     Dates: start: 20120101
  3. METFORMIN HYDROCHLORIDE [Concomitant]

REACTIONS (1)
  - PORTAL HYPERTENSIVE GASTROPATHY [None]
